FAERS Safety Report 8536408-2 (Version None)
Quarter: 2012Q3

REPORT INFORMATION
  Report Type: 
  Country: None (occurrence: None)
  Receive Date: 20120725
  Receipt Date: 20120713
  Transmission Date: 20120928
  Serious: Yes (Hospitalization, Other)
  Sender: FDA-Public Use
  Company Number: US-ROCHE-791915

PATIENT
  Sex: Female
  Weight: 56.75 kg

DRUGS (2)
  1. ACCUTANE [Suspect]
     Indication: ACNE
     Route: 065
     Dates: start: 19960501, end: 19960801
  2. ACCUTANE [Suspect]

REACTIONS (6)
  - INFLAMMATORY BOWEL DISEASE [None]
  - ANAL FISTULA [None]
  - CROHN'S DISEASE [None]
  - ARTHRITIS [None]
  - INTESTINAL OBSTRUCTION [None]
  - EMOTIONAL DISTRESS [None]
